FAERS Safety Report 8735910 (Version 2)
Quarter: 2012Q4

REPORT INFORMATION
  Report Type: 
  Country: CA (occurrence: CA)
  Receive Date: 20120822
  Receipt Date: 20121001
  Transmission Date: 20130627
  Serious: Yes (Hospitalization, Other)
  Sender: FDA-Public Use
  Company Number: CA-PFIZER INC-2012201056

PATIENT
  Age: 53 Year
  Sex: Female
  Weight: 58.96 kg

DRUGS (14)
  1. SUTENT [Suspect]
     Indication: HAEMANGIOBLASTOMA
     Dosage: 50 mg, 1x/day
     Route: 048
     Dates: start: 20120611, end: 20120617
  2. SUTENT [Suspect]
     Dosage: 25 mg, UNK
     Route: 048
     Dates: start: 20120718, end: 20120727
  3. MELATONIN [Concomitant]
     Dosage: UNK
  4. PANTOPRAZOLE [Concomitant]
     Dosage: 40 mg, daily
  5. LEVOTHYROXINE [Concomitant]
     Dosage: .075 ug, daily
  6. GABAPENTIN [Concomitant]
     Dosage: 300 mg, 3x/day
  7. DILTIAZEM ER [Concomitant]
     Dosage: 120 mg, daily
  8. DEXAMETHASONE [Concomitant]
     Dosage: 0.5 mg, 4 tablets per day as directed
  9. TANDRILAX [Concomitant]
     Dosage: UNK
  10. METOCLOPRAMIDE [Concomitant]
     Dosage: 1 tablet, every 8 hours
  11. HYDROMORPHONE [Concomitant]
     Dosage: 2 mg, 1 to 2 tablets every 4 hours as needed
  12. LASIX [Concomitant]
     Dosage: 20mg, 3 tablets (60mg) daily
     Route: 048
  13. TRANDOLAPRIL [Concomitant]
     Dosage: 2 mg, daily
  14. QUETIAPINE [Concomitant]
     Dosage: 12.5 mg, (1/2 25mg tablet) at bedtime as needed

REACTIONS (2)
  - Cholestasis [Recovering/Resolving]
  - Hepatic enzyme increased [Recovering/Resolving]
